APPROVED DRUG PRODUCT: ALKINDI SPRINKLE
Active Ingredient: HYDROCORTISONE
Strength: 1MG
Dosage Form/Route: GRANULE;ORAL
Application: N213876 | Product #002
Applicant: ETON PHARMACEUTICALS INC
Approved: Sep 29, 2020 | RLD: Yes | RS: No | Type: RX

PATENTS:
Patent 9675559 | Expires: Jan 10, 2033
Patent 9649280 | Expires: May 12, 2034
Patent 9717740 | Expires: Nov 19, 2032